FAERS Safety Report 19165119 (Version 2)
Quarter: 2021Q2

REPORT INFORMATION
  Report Type: Spontaneous
  Country: FR (occurrence: FR)
  Receive Date: 20210421
  Receipt Date: 20210621
  Transmission Date: 20210717
  Serious: Yes (Other)
  Sender: FDA-Public Use
  Company Number: FR-MYLANLABS-2021M1023877

PATIENT
  Age: 40 Year
  Sex: Female

DRUGS (3)
  1. BROMAZEPAM [Concomitant]
     Active Substance: BROMAZEPAM
     Indication: ANXIETY
     Dosage: UNK
  2. TRAMADOL. [Suspect]
     Active Substance: TRAMADOL
     Indication: BLADDER PAIN
     Dosage: 50 MILLIGRAM, QH, 10 TO 12 PER DAY
     Route: 048
     Dates: start: 2013
  3. TRAMADOL. [Suspect]
     Active Substance: TRAMADOL
     Indication: BLADDER PAIN
     Dosage: UNK

REACTIONS (6)
  - Hyperaesthesia [Recovered/Resolved]
  - Drug abuse [Recovered/Resolved]
  - Intentional overdose [Recovered/Resolved]
  - Drug dependence [Recovered/Resolved]
  - Withdrawal syndrome [Recovered/Resolved]
  - Intentional product misuse [Recovered/Resolved]
